FAERS Safety Report 8233294-5 (Version None)
Quarter: 2012Q1

REPORT INFORMATION
  Report Type: 
  Country: None (occurrence: None)
  Receive Date: 20120326
  Receipt Date: 20120319
  Transmission Date: 20120608
  Serious: Yes (Other)
  Sender: FDA-Public Use
  Company Number: US-BAYER-2011-117400

PATIENT
  Age: 31 Year
  Sex: Female

DRUGS (6)
  1. YASMIN [Suspect]
     Indication: CONTRACEPTION
     Dosage: UNK
     Dates: start: 20050621, end: 20050826
  2. DROSPIRENONE AND ETHINYL ESTRADIOL [Suspect]
     Indication: CONTRACEPTION
  3. XANAX [Concomitant]
     Dosage: UNK
     Dates: start: 20100302
  4. YAZ [Suspect]
     Indication: CONTRACEPTION
     Dosage: UNK
     Dates: start: 20080826, end: 20090314
  5. YASMIN [Suspect]
     Dosage: UNK
     Dates: start: 20070618, end: 20070802
  6. RITALIN [Concomitant]
     Indication: ATTENTION DEFICIT/HYPERACTIVITY DISORDER
     Dosage: UNK
     Route: 048
     Dates: start: 19980101

REACTIONS (5)
  - INJURY [None]
  - GALLBLADDER INJURY [None]
  - ENDOMETRIOSIS [None]
  - HYPOGLYCAEMIA [None]
  - PAIN [None]
